FAERS Safety Report 8087576-0 (Version None)
Quarter: 2012Q1

REPORT INFORMATION
  Report Type: 
  Country: None (occurrence: None)
  Receive Date: 20120128
  Receipt Date: 20110524
  Transmission Date: 20120608
  Serious: No
  Sender: FDA-Public Use
  Company Number: US-ABBOTT-11P-163-0728247-00

PATIENT
  Age: 59 Year
  Sex: Male

DRUGS (8)
  1. IRON [Concomitant]
     Indication: ANAEMIA
  2. MAGNESIUM [Concomitant]
     Indication: PRODUCT USED FOR UNKNOWN INDICATION
     Dosage: DAILY
  3. HUMIRA [Suspect]
     Indication: CROHN'S DISEASE
     Dates: start: 20100501
  4. CHOLESTYRAMINE [Concomitant]
     Indication: CROHN'S DISEASE
     Dosage: PACKET
  5. CHOLESTYRAMINE [Concomitant]
     Indication: CHOLECYSTECTOMY
  6. CALCIUM [Concomitant]
     Indication: PRODUCT USED FOR UNKNOWN INDICATION
  7. VITAMIN D [Concomitant]
     Indication: PRODUCT USED FOR UNKNOWN INDICATION
  8. DIPHENOXYLATE HCL + ATROPINE SULFATE [Concomitant]
     Indication: SHORT-BOWEL SYNDROME
     Dosage: 2.5MG/0.025MG X5 DAILY

REACTIONS (1)
  - VISION BLURRED [None]
